FAERS Safety Report 19901833 (Version 1)
Quarter: 2021Q3

REPORT INFORMATION
  Report Type: Spontaneous
  Country: CN (occurrence: CN)
  Receive Date: 20210929
  Receipt Date: 20210929
  Transmission Date: 20211014
  Serious: Yes (Hospitalization)
  Sender: FDA-Public Use
  Company Number: CN-BAXTER-2021BAX025083

PATIENT
  Age: 46 Year
  Sex: Female
  Weight: 46.5 kg

DRUGS (6)
  1. SODIUM CHLORIDE. [Suspect]
     Active Substance: SODIUM CHLORIDE
     Dosage: DOSE RE?INTRODUCED; EPIRUBICIN HYDROCHLORIDE +  0.9% SODIUM CHLORIDE
     Route: 041
  2. PHARMORUBICIN [Suspect]
     Active Substance: EPIRUBICIN
     Indication: INVASIVE DUCTAL BREAST CARCINOMA
     Dosage: EPIRUBICIN HYDROCHLORIDE 125MG +  0.9% SODIUM CHLORIDE 250ML; FIRST CYCLE OF EC CHEMOTHERAPY
     Route: 041
     Dates: start: 20190312, end: 20190312
  3. ENDOXAN [Suspect]
     Active Substance: CYCLOPHOSPHAMIDE
     Dosage: DOSE RE?INTRODUCED
     Route: 041
  4. ENDOXAN [Suspect]
     Active Substance: CYCLOPHOSPHAMIDE
     Indication: INVASIVE DUCTAL BREAST CARCINOMA
     Dosage: FIRST CYCLE OF EC CHEMOTHERAPY
     Route: 041
     Dates: start: 20190312, end: 20190312
  5. PHARMORUBICIN [Suspect]
     Active Substance: EPIRUBICIN
     Dosage: DOSE RE?INTRODUCED; EPIRUBICIN HYDROCHLORIDE +  0.9% SODIUM CHLORIDE
     Route: 041
  6. SODIUM CHLORIDE. [Suspect]
     Active Substance: SODIUM CHLORIDE
     Indication: MEDICATION DILUTION
     Dosage: EPIRUBICIN HYDROCHLORIDE 125MG +  0.9% SODIUM CHLORIDE 250ML; FIRST CYCLE OF EC CHEMOTHERAPY
     Route: 041
     Dates: start: 20190312, end: 20190312

REACTIONS (4)
  - Mental fatigue [Unknown]
  - Granulocytopenia [Recovered/Resolved]
  - Dizziness [Unknown]
  - Myelosuppression [Recovered/Resolved]

NARRATIVE: CASE EVENT DATE: 20190320
